FAERS Safety Report 4992583-8 (Version None)
Quarter: 2006Q1

REPORT INFORMATION
  Report Type: 
  Country: None (occurrence: None)
  Receive Date: 20060313
  Receipt Date: 20051214
  Transmission Date: 20060701
  Serious: Yes (Hospitalization, Other)
  Sender: FDA-Public Use
  Company Number: PHEH2005US13157

PATIENT
  Sex: Female

DRUGS (1)
  1. TRILEPTAL [Suspect]

REACTIONS (4)
  - BLOOD IMMUNOGLOBULIN A [None]
  - CHROMATURIA [None]
  - HAEMATURIA [None]
  - RENAL IMPAIRMENT [None]
